FAERS Safety Report 24924460 (Version 2)
Quarter: 2025Q1

REPORT INFORMATION
  Report Type: Spontaneous
  Country: IE (occurrence: IE)
  Receive Date: 20250204
  Receipt Date: 20250303
  Transmission Date: 20250408
  Serious: Yes (Other)
  Sender: NOVARTIS
  Company Number: IE-002147023-NVSC2025IE016929

PATIENT
  Age: 68 Year
  Sex: Female

DRUGS (2)
  1. KISQALI [Suspect]
     Active Substance: RIBOCICLIB
     Indication: Breast cancer
     Route: 065
     Dates: start: 2024, end: 202412
  2. KISQALI [Suspect]
     Active Substance: RIBOCICLIB
     Indication: Plasma cell myeloma
     Dosage: UNK, BID
     Route: 048
     Dates: start: 202404, end: 202411

REACTIONS (3)
  - Neuropathy peripheral [Unknown]
  - Hypoaesthesia [Unknown]
  - Nerve injury [Recovered/Resolved]
